FAERS Safety Report 18908118 (Version 1)
Quarter: 2021Q1

REPORT INFORMATION
  Report Type: Spontaneous
  Country: GB (occurrence: GB)
  Receive Date: 20210218
  Receipt Date: 20210218
  Transmission Date: 20210420
  Serious: No
  Sender: FDA-Public Use
  Company Number: GB-ALKEM LABORATORIES LIMITED-GB-ALKEM-2020-02824

PATIENT
  Age: 13 Year
  Sex: Male
  Weight: 50.3 kg

DRUGS (2)
  1. CEPHALEXIN. [Suspect]
     Active Substance: CEPHALEXIN
     Indication: ARTHRITIS BACTERIAL
     Dosage: UNK (EVERY)
     Route: 048
     Dates: start: 20200521, end: 20200522
  2. FUSIDIC ACID [Suspect]
     Active Substance: FUSIDIC ACID
     Indication: ARTHRITIS BACTERIAL
     Dosage: UNK (EVERY)
     Route: 048
     Dates: start: 20200521, end: 20200522

REACTIONS (1)
  - Rash [Recovered/Resolved]

NARRATIVE: CASE EVENT DATE: 20200522
